FAERS Safety Report 14199596 (Version 1)
Quarter: 2017Q4

REPORT INFORMATION
  Report Type: Spontaneous
  Country: US (occurrence: None)
  Receive Date: 20171116
  Receipt Date: 20171116
  Transmission Date: 20180321
  Serious: No
  Sender: FDA-Public Use
  Company Number: None

PATIENT
  Age: 73 Year
  Sex: Female

DRUGS (1)
  1. FORTEO [Suspect]
     Active Substance: TERIPARATIDE
     Indication: OSTEOPOROSIS
     Route: 058
     Dates: start: 20161020, end: 20171030

REACTIONS (3)
  - Therapy change [None]
  - Osteogenesis imperfecta [None]
  - Therapy cessation [None]

NARRATIVE: CASE EVENT DATE: 20171030
